FAERS Safety Report 4961473-9 (Version None)
Quarter: 2006Q2

REPORT INFORMATION
  Report Type: 
  Country: None (occurrence: None)
  Receive Date: 20060403
  Receipt Date: 20051104
  Transmission Date: 20061013
  Serious: Yes (Other)
  Sender: FDA-Public Use
  Company Number: US-MERCK-0511USA01178

PATIENT
  Age: 81 Year
  Sex: Female
  Weight: 66 kg

DRUGS (25)
  1. IMDUR [Concomitant]
     Route: 065
  2. INSULIN [Concomitant]
     Route: 065
  3. ISOSORBIDE [Concomitant]
     Route: 065
  4. LOTENSIN [Concomitant]
     Route: 065
  5. LOTREL [Concomitant]
     Route: 065
  6. METOPROLOL [Concomitant]
     Route: 065
  7. NAPROXEN [Concomitant]
     Route: 065
  8. NORVASC [Concomitant]
     Route: 065
  9. PEPCID [Concomitant]
     Route: 048
  10. PLAVIX [Concomitant]
     Route: 065
  11. TOPROL-XL [Concomitant]
     Route: 065
  12. VASOTEC RPD [Concomitant]
     Route: 065
  13. ZESTRIL [Concomitant]
     Route: 065
  14. TYLENOL (CAPLET) [Concomitant]
     Route: 065
  15. VIOXX [Suspect]
     Indication: OSTEOARTHRITIS
     Route: 048
     Dates: start: 20010201, end: 20041001
  16. VIOXX [Suspect]
     Route: 048
     Dates: start: 20010201, end: 20041001
  17. ACETAMINOPHEN [Concomitant]
     Route: 065
  18. ALEVE [Concomitant]
     Route: 065
  19. ACTOS [Concomitant]
     Route: 065
  20. AMITRIPTYLINE PAMOATE [Concomitant]
     Route: 065
  21. AMLODIPINE BESYLATE [Concomitant]
     Route: 065
  22. ASPIRIN [Concomitant]
     Route: 065
  23. DARVOCET [Concomitant]
     Route: 065
  24. ELAVIL [Concomitant]
     Route: 048
  25. ENALAPRIL MALEATE [Concomitant]
     Route: 065

REACTIONS (18)
  - ANXIETY [None]
  - BACTERIAL INFECTION [None]
  - CARDIAC DISORDER [None]
  - CARDIAC FAILURE CONGESTIVE [None]
  - CEREBROVASCULAR ACCIDENT [None]
  - CHEST PAIN [None]
  - CONSTIPATION [None]
  - CORONARY ARTERY DISEASE [None]
  - DRUG HYPERSENSITIVITY [None]
  - DYSPNOEA [None]
  - EATING DISORDER [None]
  - GASTRIC DISORDER [None]
  - GENERAL SYMPTOM [None]
  - HYPOKALAEMIA [None]
  - MYOCARDIAL INFARCTION [None]
  - NECK PAIN [None]
  - OEDEMA [None]
  - RHEUMATOID ARTHRITIS [None]
